FAERS Safety Report 5846048-1 (Version None)
Quarter: 2008Q3

REPORT INFORMATION
  Report Type: 
  Country: None (occurrence: None)
  Receive Date: 20080813
  Receipt Date: 20080731
  Transmission Date: 20090109
  Serious: Yes (Other)
  Sender: FDA-Public Use
  Company Number: SPV1-2008-01628

PATIENT
  Age: 35 Year
  Sex: Male
  Weight: 123.8 kg

DRUGS (3)
  1. CARBATROL [Suspect]
     Indication: CONVULSION
     Dosage: 100 MG, ORAL, 300 MG, ORAL
     Route: 048
     Dates: start: 20040101, end: 20050101
  2. CARBATROL [Suspect]
     Indication: CONVULSION
     Dosage: 100 MG, ORAL, 300 MG, ORAL
     Route: 048
     Dates: start: 20050101, end: 20060401
  3. TOPAMAX [Suspect]
     Indication: EPILEPSY
     Dosage: 200 MG, ORAL
     Route: 048
     Dates: start: 20040101, end: 20060401

REACTIONS (4)
  - ABNORMAL BEHAVIOUR [None]
  - DRUG REHABILITATION [None]
  - HYPERSENSITIVITY [None]
  - MALAISE [None]
